FAERS Safety Report 7358023-9 (Version None)
Quarter: 2011Q1

REPORT INFORMATION
  Report Type: 
  Country: None (occurrence: None)
  Receive Date: 20110317
  Receipt Date: 20110311
  Transmission Date: 20110831
  Serious: Yes (Hospitalization)
  Sender: FDA-Public Use
  Company Number: IT-ABBOTT-11P-083-0701463-00

PATIENT
  Sex: Female

DRUGS (8)
  1. MADOPAR [Concomitant]
     Indication: PRODUCT USED FOR UNKNOWN INDICATION
  2. TOTALIP [Concomitant]
     Indication: PRODUCT USED FOR UNKNOWN INDICATION
  3. VALPRESSION [Concomitant]
     Indication: PRODUCT USED FOR UNKNOWN INDICATION
  4. COUMADIN [Concomitant]
     Indication: PRODUCT USED FOR UNKNOWN INDICATION
  5. LASIX [Concomitant]
     Indication: PRODUCT USED FOR UNKNOWN INDICATION
  6. CLARITHROMYCIN [Suspect]
     Indication: INFLUENZA
     Route: 048
     Dates: start: 20100503, end: 20100509
  7. TEGRETOL [Suspect]
     Indication: PARTIAL SEIZURES
     Dosage: 2.5 TABS DAILY
     Dates: start: 20100201, end: 20100511
  8. RIVOTRIL [Concomitant]
     Indication: PRODUCT USED FOR UNKNOWN INDICATION

REACTIONS (3)
  - CONFUSIONAL STATE [None]
  - DYSARTHRIA [None]
  - VOMITING [None]
